FAERS Safety Report 18925981 (Version 2)
Quarter: 2021Q1

REPORT INFORMATION
  Report Type: Other
  Country: GR (occurrence: GR)
  Receive Date: 20210222
  Receipt Date: 20210311
  Transmission Date: 20210420
  Serious: Yes (Hospitalization, Other)
  Sender: FDA-Public Use
  Company Number: GR-VALIDUS PHARMACEUTICALS LLC-GR-2021VAL000098

PATIENT

DRUGS (12)
  1. XIGDUO XR [Concomitant]
     Active Substance: DAPAGLIFLOZIN PROPANEDIOL\METFORMIN HYDROCHLORIDE
     Indication: DIABETES MELLITUS
     Dosage: 2 DOSAGE FORM, DAILY
     Route: 065
  2. T4 [Concomitant]
     Active Substance: LEVOTHYROXINE
     Dosage: 1 DOSAGE FORM, 4/W (150 MG TABLET) (4 DOSAGE FORMS,1 WK)
     Route: 065
  3. FEMARA [Concomitant]
     Active Substance: LETROZOLE
     Indication: BREAST CANCER
     Dosage: 2.5 MG, QD (2.5 MG,1 D)
     Route: 065
  4. XULTOPHY 100/3.6 [Concomitant]
     Active Substance: INSULIN DEGLUDEC\LIRAGLUTIDE
     Indication: DIABETES MELLITUS
     Dosage: 14 INTERNATIONAL UNIT, UNKNOWN (14 IU)
     Route: 065
  5. LECALCIF [Suspect]
     Active Substance: CHOLECALCIFEROL
     Indication: PRODUCT USED FOR UNKNOWN INDICATION
     Dosage: 1 DF, 2/W (2 DOSAGE FORMS,1 WK)
     Route: 065
     Dates: end: 20201212
  6. ACTOS [Concomitant]
     Active Substance: PIOGLITAZONE HYDROCHLORIDE
     Indication: DIABETES MELLITUS
     Dosage: 15 MG, DAILY (15 MG,1 D)
     Route: 065
  7. T4 [Concomitant]
     Active Substance: LEVOTHYROXINE
     Indication: THYROID DISORDER
     Dosage: 1 DOSAGE FORM, 3/W (137 MG TABLET) (3 DOSAGE FORMS,1 WK)
     Route: 065
  8. SEVIKAR [Concomitant]
     Active Substance: AMLODIPINE BESYLATE\OLMESARTAN MEDOXOMIL
     Indication: BLOOD PRESSURE ABNORMAL
     Dosage: 1 DOSAGE FORM, DAILY (1 DOSAGE FORMS,1 D)
     Route: 065
  9. ROCALTROL [Suspect]
     Active Substance: CALCITRIOL
     Indication: PRODUCT USED FOR UNKNOWN INDICATION
     Dosage: 4 DOSAGE FORM, DAILY (4 DOSAGE FORMS,1 D)
     Route: 065
     Dates: end: 20201212
  10. TERIPARATIDE [Suspect]
     Active Substance: TERIPARATIDE
     Indication: OSTEOPOROSIS
     Dosage: 20 ?G, QD (20 MCG,1 D)
     Route: 058
     Dates: start: 20200808, end: 20210121
  11. NATECAL D3 [Suspect]
     Active Substance: CALCIUM CARBONATE\CHOLECALCIFEROL
     Indication: BONE PAIN
     Dosage: 1 DF, QD (1 DOSAGE FORMS,1 D)
     Route: 065
  12. SALOSPIR [Concomitant]
     Active Substance: ASPIRIN
     Indication: CARDIOVASCULAR DISORDER
     Dosage: 100 MG, QD
     Route: 065

REACTIONS (6)
  - Blood parathyroid hormone decreased [Unknown]
  - Blood calcium increased [Recovering/Resolving]
  - Blood calcium decreased [Unknown]
  - Mobility decreased [Unknown]
  - Gait disturbance [Unknown]
  - Blood glucose increased [Recovered/Resolved]

NARRATIVE: CASE EVENT DATE: 20201027
